FAERS Safety Report 25823613 (Version 1)
Quarter: 2025Q3

REPORT INFORMATION
  Report Type: Spontaneous
  Country: JP (occurrence: JP)
  Receive Date: 20250919
  Receipt Date: 20250919
  Transmission Date: 20251021
  Serious: Yes (Death)
  Sender: JOHNSON AND JOHNSON
  Company Number: JP-NShinyaku-EVA20251253201001307081

PATIENT
  Age: 75 Year
  Sex: Female

DRUGS (1)
  1. SELEXIPAG [Suspect]
     Active Substance: SELEXIPAG
     Indication: Pulmonary hypertension
     Route: 048

REACTIONS (1)
  - Death [Fatal]
